FAERS Safety Report 10048654 (Version 1)
Quarter: 2014Q1

REPORT INFORMATION
  Report Type: Spontaneous
  Country: US (occurrence: US)
  Receive Date: 20140331
  Receipt Date: 20140331
  Transmission Date: 20141002
  Serious: No
  Sender: FDA-Public Use
  Company Number: US-PFIZER INC-2014090387

PATIENT
  Age: 66 Year
  Sex: Female
  Weight: 86.17 kg

DRUGS (13)
  1. NEURONTIN [Suspect]
     Indication: FIBROMYALGIA
     Dosage: 1200 MG, DAILY
  2. ALPRAZOLAM [Concomitant]
     Indication: AFFECTIVE DISORDER
     Dosage: 25 MG, DAILY
  3. CLOPIDOGREL [Concomitant]
     Indication: CARDIAC DISORDER
     Dosage: 6.25 MG, DAILY
  4. SPIRONOLACTONE [Concomitant]
     Indication: CARDIAC DISORDER
     Dosage: 25 MG, DAILY
  5. SPIRONOLACTONE [Concomitant]
     Indication: HYPERTENSION
  6. SIMVASTATIN [Concomitant]
     Indication: BLOOD CHOLESTEROL ABNORMAL
     Dosage: 10 MG, DAILY
  7. LOSARTAN [Concomitant]
     Indication: HYPERTENSION
     Dosage: 10 MG, DAILY
  8. LANTON [Concomitant]
     Indication: ABDOMINAL DISCOMFORT
     Dosage: 150 MG, DAILY
  9. TRAMADOL [Concomitant]
     Dosage: 50 MG, AS NEEDED
  10. ASPIRIN [Concomitant]
     Dosage: UNK
  11. CARVEDILOL [Concomitant]
     Dosage: UNK
  12. VITAMIN B3 [Concomitant]
     Dosage: UNK
  13. CALCIUM [Concomitant]
     Dosage: UNK

REACTIONS (5)
  - Pain [Unknown]
  - Gait disturbance [Unknown]
  - Arthralgia [Unknown]
  - Limb discomfort [Unknown]
  - Pain in extremity [Unknown]
